FAERS Safety Report 8130267-8 (Version None)
Quarter: 2012Q1

REPORT INFORMATION
  Report Type: 
  Country: None (occurrence: None)
  Receive Date: 20120210
  Receipt Date: 20120203
  Transmission Date: 20120608
  Serious: Yes (Hospitalization)
  Sender: FDA-Public Use
  Company Number: PHHY2011DE44073

PATIENT
  Sex: Female
  Weight: 73 kg

DRUGS (6)
  1. ZOMETA [Suspect]
     Indication: BONE DISORDER
     Dosage: 4MG/5ML EVERY 4 WEEKS
     Route: 042
     Dates: start: 20101206
  2. FENTANYL CITRATE [Concomitant]
     Dosage: 100 UG, DAILY
     Dates: start: 20101206
  3. ZOMETA [Suspect]
     Dosage: 4MG/5ML EVERY 4 WEEKS
     Route: 042
     Dates: start: 20110822
  4. DURAGESIC-100 [Concomitant]
     Dosage: 25 UG, DAILY
     Route: 058
     Dates: start: 20030101
  5. CLODRONATE DISODIUM [Concomitant]
     Dosage: 800 MG, UNK
     Dates: start: 20100601, end: 20101101
  6. FEMARA [Concomitant]
     Dosage: 2.5 MG, DAILY
     Route: 048
     Dates: start: 20100623

REACTIONS (5)
  - NEOPLASM MALIGNANT [None]
  - OSTEONECROSIS OF JAW [None]
  - SPINAL FRACTURE [None]
  - METASTASES TO BONE [None]
  - NEOPLASM PROGRESSION [None]
